FAERS Safety Report 9248503 (Version 1)
Quarter: 2013Q1

REPORT INFORMATION
  Report Type: Spontaneous
  Country: US (occurrence: None)
  Receive Date: 20130305
  Receipt Date: 20130305
  Transmission Date: 20140127
  Serious: Yes (Hospitalization)
  Sender: FDA-Public Use
  Company Number: 163-21880-12092237

PATIENT
  Age: 75 Year
  Sex: Female

DRUGS (7)
  1. REVLIMID (LENALIDOMIDE) (25 MILIGRAM, CAPSULES) [Suspect]
     Indication: PLASMA CELL MYELOMA
     Dosage: 25MG, 21 IN 28 D, PO
     Route: 048
     Dates: start: 20120601
  2. KONSYL (PSYLLIUM HYDROPHILIC MUCILLOID) (POWDER) [Concomitant]
  3. OMEPRAZOLE (OMEPRAZOLE) [Concomitant]
  4. VITAMIN D3 (COLECALIFEROL) [Concomitant]
  5. GLUCOSAMINE (GLUCOSAMINE) [Concomitant]
  6. FISH OIL (FISH OIL) [Concomitant]
  7. VELCADE (INJECTION) [Concomitant]

REACTIONS (1)
  - Pneumonia [None]
